FAERS Safety Report 9440580 (Version 1)
Quarter: 2013Q3

REPORT INFORMATION
  Report Type: Report from Study
  Country: CA (occurrence: CA)
  Receive Date: 20130805
  Receipt Date: 20130805
  Transmission Date: 20140515
  Serious: Yes (Other)
  Sender: FDA-Public Use
  Company Number: CA-JNJFOC-20130717560

PATIENT
  Age: 60 Year
  Sex: Female
  Weight: 79.1 kg

DRUGS (9)
  1. REMICADE [Suspect]
     Indication: PSORIASIS
     Route: 042
     Dates: start: 20130729
  2. REMICADE [Suspect]
     Indication: PSORIASIS
     Route: 042
     Dates: start: 200910
  3. VENLAFAXINE HCL [Concomitant]
     Route: 065
  4. RABEPRAZOLE [Concomitant]
     Route: 065
  5. AMITRIPTYLINE [Concomitant]
     Route: 065
  6. FIORINAL NOS [Concomitant]
     Indication: HEADACHE
     Dosage: AS NEEDED
     Route: 065
  7. CRESTOR [Concomitant]
     Route: 065
  8. DICLOFENAC [Concomitant]
     Route: 061
  9. VITAMINS NOS [Concomitant]
     Route: 065

REACTIONS (2)
  - Sciatica [Not Recovered/Not Resolved]
  - Pulse absent [Not Recovered/Not Resolved]
